FAERS Safety Report 4810033-9 (Version None)
Quarter: 2005Q4

REPORT INFORMATION
  Report Type: 
  Country: None (occurrence: None)
  Receive Date: 20051026
  Receipt Date: 20051014
  Transmission Date: 20060501
  Serious: Yes (Other)
  Sender: FDA-Public Use
  Company Number: PHBS2005CA15211

PATIENT
  Sex: Male

DRUGS (4)
  1. LAMISIL [Suspect]
     Dosage: 250 MG, QD
     Route: 048
     Dates: start: 20050927
  2. DIOVAN [Concomitant]
  3. LIPITOR [Concomitant]
  4. ASAPHEN [Concomitant]

REACTIONS (1)
  - ANGINA PECTORIS [None]
